FAERS Safety Report 15023841 (Version 4)
Quarter: 2018Q4

REPORT INFORMATION
  Report Type: Report from Study
  Country: CO (occurrence: CO)
  Receive Date: 20180618
  Receipt Date: 20181130
  Transmission Date: 20190204
  Serious: Yes (Hospitalization)
  Sender: FDA-Public Use
  Company Number: PHHY2018CO020722

PATIENT
  Sex: Male

DRUGS (3)
  1. REVOLADE [Suspect]
     Active Substance: ELTROMBOPAG
     Indication: IMMUNE THROMBOCYTOPENIC PURPURA
     Dosage: 50 MG, QD
     Route: 048
  2. REVOLADE [Suspect]
     Active Substance: ELTROMBOPAG
     Dosage: 25 MG, QD
     Route: 048
  3. REVOLADE [Suspect]
     Active Substance: ELTROMBOPAG
     Dosage: 100 MG, QD
     Route: 048

REACTIONS (6)
  - Platelet count decreased [Recovered/Resolved]
  - Gingival bleeding [Recovered/Resolved]
  - Localised infection [Recovered/Resolved]
  - Extra dose administered [Unknown]
  - Urinary tract infection [Recovered/Resolved]
  - Flushing [Recovered/Resolved]
